FAERS Safety Report 13503034 (Version 1)
Quarter: 2017Q2

REPORT INFORMATION
  Report Type: Spontaneous
  Country: US (occurrence: US)
  Receive Date: 20170502
  Receipt Date: 20170502
  Transmission Date: 20170830
  Serious: No
  Sender: FDA-Public Use
  Company Number: US-LANNETT COMPANY, INC.-US-2017LAN000629

PATIENT

DRUGS (6)
  1. ISONIAZID. [Suspect]
     Active Substance: ISONIAZID
     Indication: LATENT TUBERCULOSIS
     Dosage: 900 MG, ONE DAY A WEEK
     Dates: start: 20170126, end: 20170126
  2. RIFAMPIN. [Suspect]
     Active Substance: RIFAMPIN
     Dosage: 900 MG, ONE DAY A WEEK
     Dates: start: 20170209, end: 20170209
  3. RIFAMPIN. [Suspect]
     Active Substance: RIFAMPIN
     Dosage: 900 MG, ONE DAY A WEEK
     Dates: start: 20170202, end: 20170202
  4. ISONIAZID. [Suspect]
     Active Substance: ISONIAZID
     Dosage: 900 MG, ONE DAY A WEEK
     Dates: start: 20170202, end: 20170202
  5. RIFAMPIN. [Suspect]
     Active Substance: RIFAMPIN
     Indication: LATENT TUBERCULOSIS
     Dosage: 900 MG, ONE DAY A WEEK
     Dates: start: 20170126, end: 20170126
  6. ISONIAZID. [Suspect]
     Active Substance: ISONIAZID
     Dosage: 900 MG, ONE DAY A WEEK
     Dates: start: 20170209, end: 20170209

REACTIONS (9)
  - Malaise [Recovered/Resolved]
  - Depression [Recovered/Resolved]
  - Anger [Recovered/Resolved]
  - Tremor [Recovered/Resolved]
  - Mood altered [Recovered/Resolved]
  - Feeling abnormal [Recovered/Resolved]
  - Drug dispensing error [Unknown]
  - Vomiting [Recovered/Resolved]
  - Lethargy [Recovered/Resolved]

NARRATIVE: CASE EVENT DATE: 20170126
